FAERS Safety Report 23076981 (Version 4)
Quarter: 2024Q1

REPORT INFORMATION
  Report Type: Spontaneous
  Country: JP (occurrence: JP)
  Receive Date: 20231018
  Receipt Date: 20240203
  Transmission Date: 20240410
  Serious: Yes (Hospitalization)
  Sender: FDA-Public Use
  Company Number: JP-ABBVIE-5453131

PATIENT
  Age: 39 Year
  Sex: Male
  Weight: 65 kg

DRUGS (4)
  1. RINVOQ [Suspect]
     Active Substance: UPADACITINIB
     Indication: Crohn^s disease
     Dosage: FORM STRENGTH WAS 30 MILLIGRAM
     Route: 048
     Dates: start: 20230908, end: 20231016
  2. AMINO ACIDS\CARBOHYDRATES\MINERALS\SOYBEAN OIL\VITAMINS [Concomitant]
     Active Substance: AMINO ACIDS\CARBOHYDRATES\MINERALS\SOYBEAN OIL\VITAMINS
     Indication: Crohn^s disease
     Dosage: TIME INTERVAL: 0.33333333 DAYS: 3 SACHET
  3. MESALAMINE [Concomitant]
     Active Substance: MESALAMINE
     Indication: Crohn^s disease
     Dosage: TIME INTERVAL: 0.33333333 DAYS: 3000 MG
  4. BUDESONIDE [Suspect]
     Active Substance: BUDESONIDE
     Indication: Crohn^s disease
     Dosage: TIME INTERVAL: 0.33333333 DAYS: FORM STRENGTH WAS 9 MILLIGRAM
     Route: 065
     Dates: start: 20230908, end: 20231010

REACTIONS (7)
  - Haematochezia [Recovered/Resolved]
  - Palpitations [Not Recovered/Not Resolved]
  - Cytomegalovirus infection [Recovered/Resolved]
  - Cytomegalovirus gastrointestinal infection [Unknown]
  - Gastrointestinal disorder [Unknown]
  - Crohn^s disease [Recovered/Resolved]
  - Headache [Not Recovered/Not Resolved]

NARRATIVE: CASE EVENT DATE: 20230101
